FAERS Safety Report 4685336-1 (Version None)
Quarter: 2005Q2

REPORT INFORMATION
  Report Type: 
  Country: None (occurrence: None)
  Receive Date: 20050608
  Receipt Date: 20050527
  Transmission Date: 20051028
  Serious: Yes (Hospitalization)
  Sender: FDA-Public Use
  Company Number: FR-JNJFOC-20050601564

PATIENT
  Age: 77 Year
  Sex: Male

DRUGS (4)
  1. IXPRIM [Suspect]
     Indication: DRUG USE FOR UNKNOWN INDICATION
     Route: 065
  2. PYOSTACINE [Suspect]
     Route: 049
     Dates: start: 20050226, end: 20050320
  3. ORBENINE [Suspect]
     Route: 049
     Dates: start: 20050226, end: 20050320
  4. FLUDEX [Concomitant]
     Route: 065

REACTIONS (4)
  - CHOLESTASIS [None]
  - EOSINOPHILIA [None]
  - JAUNDICE [None]
  - RASH PRURITIC [None]
